FAERS Safety Report 7641881-8 (Version None)
Quarter: 2011Q3

REPORT INFORMATION
  Report Type: 
  Country: None (occurrence: None)
  Receive Date: 20110728
  Receipt Date: 20110722
  Transmission Date: 20111222
  Serious: Yes (Other)
  Sender: FDA-Public Use
  Company Number: US-ROCHE-792300

PATIENT
  Age: 77 Year
  Sex: Female

DRUGS (5)
  1. CALCIUM ACETATE [Concomitant]
  2. PAXIL [Concomitant]
  3. BONIVA [Suspect]
     Indication: OSTEOPOROSIS
     Dosage: DOSE FORM AND THERAPY DATES NOT REPORTED
     Route: 048
  4. VIT D [Concomitant]
  5. XANAX [Concomitant]

REACTIONS (3)
  - FOOT FRACTURE [None]
  - BODY HEIGHT DECREASED [None]
  - WRIST FRACTURE [None]
